FAERS Safety Report 12431030 (Version 1)
Quarter: 2016Q2

REPORT INFORMATION
  Report Type: Spontaneous
  Country: US (occurrence: US)
  Receive Date: 20160603
  Receipt Date: 20160603
  Transmission Date: 20160815
  Serious: No
  Sender: FDA-Public Use
  Company Number: US-BIOGEN-2016BI00244138

PATIENT
  Sex: Male

DRUGS (3)
  1. AMPYRA [Concomitant]
     Active Substance: DALFAMPRIDINE
     Indication: GAIT DISTURBANCE
     Route: 065
  2. TYSABRI [Suspect]
     Active Substance: NATALIZUMAB
     Indication: MULTIPLE SCLEROSIS
     Route: 065
  3. BACLOFEN. [Concomitant]
     Active Substance: BACLOFEN
     Indication: GAIT DISTURBANCE
     Route: 065

REACTIONS (6)
  - Gait disturbance [Unknown]
  - Peripheral swelling [Unknown]
  - Cardiac disorder [Unknown]
  - Urinary tract infection [Unknown]
  - Gastric disorder [Unknown]
  - Respiratory disorder [Unknown]
